FAERS Safety Report 8983860 (Version 1)
Quarter: 2012Q4

REPORT INFORMATION
  Report Type: Report from Study
  Country: US (occurrence: US)
  Receive Date: 20121224
  Receipt Date: 20121224
  Transmission Date: 20130627
  Serious: Yes (Other)
  Sender: FDA-Public Use
  Company Number: US-ROCHE-1173141

PATIENT
  Age: 84 None
  Sex: Female
  Weight: 72.64 kg

DRUGS (1)
  1. VEMURAFENIB [Suspect]
     Indication: MALIGNANT MELANOMA
     Route: 048
     Dates: start: 20111111

REACTIONS (5)
  - Squamous cell carcinoma [Not Recovered/Not Resolved]
  - Carpal tunnel syndrome [Not Recovered/Not Resolved]
  - Infection [Unknown]
  - Surgery [Not Recovered/Not Resolved]
  - Lymphadenopathy [Unknown]
